FAERS Safety Report 17586404 (Version 1)
Quarter: 2020Q1

REPORT INFORMATION
  Report Type: Spontaneous
  Country: DE (occurrence: FR)
  Receive Date: 20200326
  Receipt Date: 20200326
  Transmission Date: 20200409
  Serious: Yes (Hospitalization)
  Sender: FDA-Public Use
  Company Number: FR-ELI_LILLY_AND_COMPANY-FR202003011646

PATIENT
  Age: 69 Year
  Sex: Male

DRUGS (3)
  1. FLUOROURACILE ACCORD [Suspect]
     Active Substance: FLUOROURACIL
     Indication: OROPHARYNGEAL CANCER
     Dosage: 1000 MG/M2, DAILY
     Route: 041
     Dates: start: 20200117, end: 20200120
  2. ERBITUX [Suspect]
     Active Substance: CETUXIMAB
     Indication: OROPHARYNGEAL CANCER
     Dosage: 450 MG, UNKNOWN
     Route: 041
     Dates: start: 20200124, end: 20200124
  3. CISPLATINE ACCORD [Suspect]
     Active Substance: CISPLATIN
     Indication: OROPHARYNGEAL CANCER
     Dosage: 180 MG, DAILY
     Route: 041
     Dates: start: 20200117, end: 20200117

REACTIONS (1)
  - Bone marrow failure [Recovered/Resolved]

NARRATIVE: CASE EVENT DATE: 20200130
